FAERS Safety Report 5264959-5 (Version None)
Quarter: 2007Q1

REPORT INFORMATION
  Report Type: 
  Country: None (occurrence: None)
  Receive Date: 20070314
  Receipt Date: 20070305
  Transmission Date: 20070707
  Serious: Yes (Life-Threatening, Hospitalization, Disabling, Other)
  Sender: FDA-Public Use
  Company Number: GB-GILEAD-2006-0010592

PATIENT
  Age: 57 Year
  Sex: Female

DRUGS (8)
  1. TRUVADA [Suspect]
     Indication: HIV INFECTION
     Route: 048
     Dates: start: 20020101
  2. AZATHIOPRINE [Suspect]
     Indication: CROHN'S DISEASE
     Route: 048
     Dates: start: 20050101
  3. EFAVIRENZ [Concomitant]
     Indication: HIV INFECTION
     Route: 048
  4. PREDNISOLONE [Concomitant]
     Indication: OPTIC NEURITIS
     Route: 048
  5. BUSCOPAN [Concomitant]
     Indication: CROHN'S DISEASE
     Route: 048
  6. LOPERAMIDE HCL [Concomitant]
     Indication: CROHN'S DISEASE
     Route: 048
  7. MORPHINE SUL INJ [Concomitant]
     Indication: CROHN'S DISEASE
     Route: 048
  8. OMEPRAZOLE [Concomitant]
     Indication: CROHN'S DISEASE
     Route: 048

REACTIONS (1)
  - CENTRAL NERVOUS SYSTEM LYMPHOMA [None]
